FAERS Safety Report 20943195 (Version 2)
Quarter: 2022Q3

REPORT INFORMATION
  Report Type: Spontaneous
  Country: GB (occurrence: GB)
  Receive Date: 20220610
  Receipt Date: 20220715
  Transmission Date: 20221027
  Serious: No
  Sender: FDA-Public Use
  Company Number: GB-UCBSA-2022031553

PATIENT
  Sex: Male

DRUGS (3)
  1. NEUPRO [Suspect]
     Active Substance: ROTIGOTINE
     Indication: Product used for unknown indication
     Dosage: 2 MILLIGRAM, ONCE DAILY (QD)
  2. NEUPRO [Suspect]
     Active Substance: ROTIGOTINE
     Dosage: 2 MILLIGRAM, UNK
  3. NEUPRO [Suspect]
     Active Substance: ROTIGOTINE
     Dosage: 8 MILLIGRAM, UNK

REACTIONS (1)
  - Product adhesion issue [Unknown]
